FAERS Safety Report 26151480 (Version 2)
Quarter: 2025Q4

REPORT INFORMATION
  Report Type: Spontaneous
  Country: US (occurrence: US)
  Receive Date: 20251212
  Receipt Date: 20251222
  Transmission Date: 20260117
  Serious: Yes (Life-Threatening, Other)
  Sender: PFIZER
  Company Number: US-PFIZER INC-PV202500145040

PATIENT
  Age: 77 Year
  Sex: Male

DRUGS (1)
  1. DIAZEPAM [Suspect]
     Active Substance: DIAZEPAM
     Indication: Alcohol withdrawal syndrome
     Dosage: 1040 MG OVER NINE DAYS

REACTIONS (3)
  - Overdose [Unknown]
  - Depressed level of consciousness [Unknown]
  - Pneumonia aspiration [Unknown]
